FAERS Safety Report 8357747-4 (Version None)
Quarter: 2012Q2

REPORT INFORMATION
  Report Type: 
  Country: None (occurrence: None)
  Receive Date: 20120514
  Receipt Date: 20111223
  Transmission Date: 20120825
  Serious: Yes (Life-Threatening)
  Sender: FDA-Public Use
  Company Number: US-ROCHE-1008837

PATIENT
  Sex: Male

DRUGS (13)
  1. COPEGUS [Suspect]
     Indication: HEPATITIS C
  2. TELAPREVIR [Suspect]
     Indication: HEPATITIS C
     Route: 048
     Dates: start: 20111020, end: 20111103
  3. CYMBALTA [Concomitant]
     Indication: DEPRESSION
     Route: 048
  4. DILAUDID [Concomitant]
     Indication: PAIN
     Route: 048
  5. PROTONIX [Concomitant]
     Indication: GASTROOESOPHAGEAL REFLUX DISEASE
     Route: 048
  6. DOXEPIN HCL [Concomitant]
  7. SOMA [Concomitant]
     Indication: PAIN
  8. XANAX [Concomitant]
     Indication: ANXIETY
  9. NEOMYCIN SULFATE [Concomitant]
     Indication: PAIN
     Route: 048
  10. PEGASYS [Suspect]
     Indication: HEPATITIS C
  11. FENTANYL-100 [Concomitant]
     Dosage: Q72.
  12. NEURONTIN [Concomitant]
     Indication: PAIN
  13. ZOFRAN [Concomitant]
     Indication: NAUSEA

REACTIONS (3)
  - UNEVALUABLE EVENT [None]
  - RESPIRATORY DEPRESSION [None]
  - DRUG INEFFECTIVE [None]
